FAERS Safety Report 7149559-4 (Version None)
Quarter: 2010Q4

REPORT INFORMATION
  Report Type: 
  Country: None (occurrence: None)
  Receive Date: 20101209
  Receipt Date: 20101129
  Transmission Date: 20110411
  Serious: Yes (Other)
  Sender: FDA-Public Use
  Company Number: US-SANOFI-AVENTIS-2010SA072600

PATIENT
  Age: 58 Year
  Sex: Male

DRUGS (3)
  1. PLAVIX [Suspect]
     Indication: STENT PLACEMENT
     Route: 048
     Dates: start: 20050101
  2. PLAVIX [Suspect]
     Indication: PROPHYLAXIS
     Route: 048
     Dates: start: 20050101
  3. ANTIHYPERTENSIVES [Concomitant]

REACTIONS (10)
  - ARTHRITIS [None]
  - BENIGN PROSTATIC HYPERPLASIA [None]
  - BLOOD URINE PRESENT [None]
  - CONTUSION [None]
  - HAEMORRHAGE [None]
  - HERNIA [None]
  - IMPAIRED HEALING [None]
  - JOINT SPRAIN [None]
  - NEOPLASM MALIGNANT [None]
  - PROSTATE INFECTION [None]
